FAERS Safety Report 4379057-2 (Version None)
Quarter: 2004Q2

REPORT INFORMATION
  Report Type: 
  Country: None (occurrence: None)
  Receive Date: 20040610
  Receipt Date: 20040428
  Transmission Date: 20050107
  Serious: Yes (Hospitalization)
  Sender: FDA-Public Use
  Company Number: 2004210888JP

PATIENT
  Age: 73 Year
  Sex: Male
  Weight: 70.1 kg

DRUGS (6)
  1. CAMPTOSAR [Suspect]
     Indication: COLORECTAL CANCER
     Dosage: SEE IMAGE
     Route: 041
     Dates: start: 20040219, end: 20040219
  2. CAMPTOSAR [Suspect]
     Indication: COLORECTAL CANCER
     Dosage: SEE IMAGE
     Route: 041
     Dates: start: 20040311, end: 20040311
  3. CAMPTOSAR [Suspect]
     Indication: COLORECTAL CANCER
     Dosage: SEE IMAGE
     Route: 041
     Dates: start: 20040401, end: 20040401
  4. TS-1 (TEGAFUR, GIMERACIL, OTERACIL POTASSIUM) [Suspect]
     Indication: COLORECTAL CANCER
     Dosage: 120 MG, DAYS 3 + 6, CYCLIC, ORAL
     Route: 048
     Dates: start: 20040221, end: 20040415
  5. HANGE-SHASHIN-TO [Concomitant]
  6. CEFCAPENE PIVOXIL HYDROCHLORIDE (CEFCAPENE PIVOXIL HYDROCHLORIDE) [Concomitant]

REACTIONS (7)
  - ANOREXIA [None]
  - ANURIA [None]
  - BRONCHITIS ACUTE [None]
  - CYSTITIS [None]
  - HAEMOLYTIC ANAEMIA [None]
  - HYPOALBUMINAEMIA [None]
  - RHABDOMYOLYSIS [None]
